FAERS Safety Report 5829940-3 (Version None)
Quarter: 2008Q3

REPORT INFORMATION
  Report Type: 
  Country: None (occurrence: None)
  Receive Date: 20080730
  Receipt Date: 20080730
  Transmission Date: 20090109
  Serious: No
  Sender: FDA-Public Use
  Company Number: None

PATIENT

DRUGS (1)
  1. NEUTROGENA ULTRA-SHEER SUNBLOCK [Suspect]

REACTIONS (3)
  - DRUG TOXICITY [None]
  - NAUSEA [None]
  - NONSPECIFIC REACTION [None]
